FAERS Safety Report 7603255-5 (Version None)
Quarter: 2011Q3

REPORT INFORMATION
  Report Type: 
  Country: None (occurrence: None)
  Receive Date: 20110711
  Receipt Date: 20110711
  Transmission Date: 20111222
  Serious: Yes (Other)
  Sender: FDA-Public Use
  Company Number: None

PATIENT
  Sex: Female

DRUGS (1)
  1. ALPRAZOLAM [Suspect]
     Indication: POST-TRAUMATIC STRESS DISORDER
     Dosage: ALPRAZOLAM 2 GM QID PO
     Route: 048
     Dates: start: 20110503, end: 20110514

REACTIONS (2)
  - NAUSEA [None]
  - DRUG INTOLERANCE [None]
